FAERS Safety Report 10050019 (Version 1)
Quarter: 2014Q1

REPORT INFORMATION
  Report Type: Spontaneous
  Country: US (occurrence: None)
  Receive Date: 20140331
  Receipt Date: 20140331
  Transmission Date: 20141002
  Serious: Yes (Disabling)
  Sender: FDA-Public Use
  Company Number: None

PATIENT
  Age: 68 Year
  Sex: Female

DRUGS (1)
  1. AMOX-TR-K-CLV [Suspect]
     Indication: SINUSITIS
     Dosage: STOPPED 2ND DAY, 1 EVERY 12 HRS, TWICE DAILY, TAKEN BY MOUTH
     Route: 048

REACTIONS (5)
  - Abdominal pain upper [None]
  - Abdominal pain [None]
  - Aphagia [None]
  - Asthenia [None]
  - Nausea [None]
